FAERS Safety Report 9104208 (Version 2)
Quarter: 2013Q2

REPORT INFORMATION
  Report Type: Spontaneous
  Country: FR (occurrence: FR)
  Receive Date: 20130219
  Receipt Date: 20130416
  Transmission Date: 20140414
  Serious: Yes (Hospitalization, Other)
  Sender: FDA-Public Use
  Company Number: FR-PFIZER INC-2013057278

PATIENT
  Age: 50 Year
  Sex: Female

DRUGS (2)
  1. AROMASINE [Suspect]
     Indication: BREAST CANCER
     Dosage: UNK
  2. TAMOXIFEN [Suspect]
     Indication: BREAST CANCER
     Dosage: UNK
     Dates: start: 2008

REACTIONS (1)
  - Rheumatoid arthritis [Recovered/Resolved with Sequelae]
